FAERS Safety Report 14775413 (Version 1)
Quarter: 2018Q2

REPORT INFORMATION
  Report Type: Spontaneous
  Country: ZA (occurrence: ZA)
  Receive Date: 20180418
  Receipt Date: 20180418
  Transmission Date: 20180711
  Serious: Yes (Hospitalization, Other)
  Sender: FDA-Public Use
  Company Number: ZA-PFIZER INC-2018154059

PATIENT
  Age: 69 Year
  Sex: Male

DRUGS (9)
  1. ASPAVOR [Suspect]
     Active Substance: ATORVASTATIN
     Dosage: 10 MG, UNK
  2. TRAMAZAC CO [Suspect]
     Active Substance: ACETAMINOPHEN\TRAMADOL
     Dosage: 37.5/325 MG, UNK
  3. SPIRACTIN (SPIRONOLACTONE) [Suspect]
     Active Substance: SPIRONOLACTONE
     Dosage: 25 MG, UNK
  4. ASPEN WARFARIN [Suspect]
     Active Substance: WARFARIN
     Dosage: 5 MG, UNK
  5. ZOLPIHEXAL [Suspect]
     Active Substance: ZOLPIDEM TARTRATE
     Dosage: 10 MG, UNK
  6. FLEXOCAM [Suspect]
     Active Substance: MELOXICAM
     Dosage: 7.5 MG, UNK
  7. BIO ATENOLOL [Suspect]
     Active Substance: ATENOLOL
     Dosage: 50 MG, UNK
  8. BE TABS PREDNISONE [Suspect]
     Active Substance: PREDNISONE
     Dosage: 5 MG, UNK
  9. PREXUM PLUS [Suspect]
     Active Substance: PERINDOPRIL ERBUMINE
     Dosage: 4/12.5 MG, UNK

REACTIONS (1)
  - Scrotal infection [Not Recovered/Not Resolved]
